FAERS Safety Report 15593764 (Version 1)
Quarter: 2018Q4

REPORT INFORMATION
  Report Type: Spontaneous
  Country: US (occurrence: US)
  Receive Date: 20181106
  Receipt Date: 20181106
  Transmission Date: 20190205
  Serious: No
  Sender: FDA-Public Use
  Company Number: US-PFIZER INC-2018450112

PATIENT
  Age: 12 Year
  Sex: Female

DRUGS (1)
  1. GENOTROPIN [Suspect]
     Active Substance: SOMATROPIN
     Dosage: 1.4 MG, UNK (6 DAYS A WEEK)

REACTIONS (4)
  - Arthralgia [Unknown]
  - Increased appetite [Unknown]
  - Weight increased [Unknown]
  - Product dose omission [Unknown]
